FAERS Safety Report 15755996 (Version 1)
Quarter: 2018Q4

REPORT INFORMATION
  Report Type: Spontaneous
  Country: CA (occurrence: CA)
  Receive Date: 20181224
  Receipt Date: 20181224
  Transmission Date: 20190205
  Serious: Yes (Hospitalization, Other)
  Sender: FDA-Public Use
  Company Number: CA-CELLTRION INC.-2018CA021298

PATIENT

DRUGS (9)
  1. INFLECTRA [Suspect]
     Active Substance: INFLIXIMAB-DYYB
     Dosage: 300 MG (Q 0, 2, 6 WEEKS THEN EVERY 8 WEEKS);
     Route: 042
     Dates: start: 20181210
  2. DIMENHYDRINATE. [Concomitant]
     Active Substance: DIMENHYDRINATE
  3. INFLECTRA [Suspect]
     Active Substance: INFLIXIMAB-DYYB
     Dosage: 300 MG (Q 0, 2, 6 WEEKS THEN EVERY 8 WEEKS);
     Route: 042
     Dates: start: 20180820
  4. INFLECTRA [Suspect]
     Active Substance: INFLIXIMAB-DYYB
     Dosage: 300 MG (Q 0, 2, 6 WEEKS THEN EVERY 8 WEEKS);
     Route: 042
     Dates: start: 20180820
  5. HYDROCORTISONE. [Concomitant]
     Active Substance: HYDROCORTISONE
     Dosage: UNK
  6. INFLECTRA [Suspect]
     Active Substance: INFLIXIMAB-DYYB
     Dosage: 300 MG,  (Q 0, 2, 6 WEEKS, THEN EVERY 8 WEEKS)
     Route: 042
     Dates: start: 20180627, end: 20180627
  7. INFLECTRA [Suspect]
     Active Substance: INFLIXIMAB-DYYB
     Indication: CROHN^S DISEASE
     Dosage: 300 MG, (Q 0, 2, 6 WEEKS, THEN EVERY 8 WEEKS)
     Route: 042
     Dates: start: 20180514, end: 2018
  8. INFLECTRA [Suspect]
     Active Substance: INFLIXIMAB-DYYB
     Dosage: 300 MG (Q 0, 2, 6 WEEKS THEN EVERY 8 WEEKS);
     Route: 042
     Dates: start: 20181015
  9. DIPHENHYDRAMINE. [Concomitant]
     Active Substance: DIPHENHYDRAMINE
     Dosage: UNK

REACTIONS (15)
  - Rash pustular [Unknown]
  - Heart rate irregular [Unknown]
  - Hypersensitivity [Unknown]
  - Lip oedema [Unknown]
  - Tongue oedema [Unknown]
  - Blood pressure fluctuation [Unknown]
  - Dizziness [Unknown]
  - Arthralgia [Unknown]
  - Fatigue [Unknown]
  - Expired product administered [Unknown]
  - Nausea [Recovered/Resolved]
  - Uveitis [Unknown]
  - Abdominal pain [Unknown]
  - Rash generalised [Unknown]
  - Stress [Unknown]

NARRATIVE: CASE EVENT DATE: 2018
